FAERS Safety Report 8679548 (Version 2)
Quarter: 2012Q4

REPORT INFORMATION
  Report Type: 
  Country: BR (occurrence: BR)
  Receive Date: 20120724
  Receipt Date: 20121002
  Transmission Date: 20130627
  Serious: Yes (Other)
  Sender: FDA-Public Use
  Company Number: BR-BAYER-2012-073528

PATIENT
  Sex: Female

DRUGS (9)
  1. BETAFERON [Suspect]
     Indication: RELAPSING-REMITTING MULTIPLE SCLEROSIS
     Dosage: 1 ml, QOD
     Route: 058
     Dates: start: 2000
  2. BETAJECT COMFORT [Suspect]
     Indication: DEVICE THERAPY
     Dosage: UNK
  3. INSULIN NPH [Concomitant]
     Indication: DIABETES MELLITUS
     Dosage: UNK
     Route: 058
     Dates: start: 2004
  4. REGULAR INSULIN [Concomitant]
     Indication: DIABETES MELLITUS
     Dosage: UNK
     Route: 058
     Dates: start: 2004
  5. FLUOXETIN [Concomitant]
     Indication: DEPRESSION
     Dosage: 20 mg, BID
     Route: 048
  6. PAMELOR [Concomitant]
     Indication: DEPRESSION
     Dosage: 50 mg, BID
     Route: 048
  7. AMPLICTIL [Concomitant]
     Indication: PAIN
     Dosage: 10 gtt, UNK
     Route: 048
  8. CARBAMAZEPINE [Concomitant]
     Indication: PAIN
     Dosage: 400 mg, UNK
     Route: 048
  9. AMLODIPINE [Concomitant]
     Indication: HYPERTENSION
     Dosage: 5 mg, QID
     Route: 048
     Dates: start: 2010

REACTIONS (1)
  - Skin necrosis [Not Recovered/Not Resolved]
